FAERS Safety Report 8988358 (Version 1)
Quarter: 2012Q4

REPORT INFORMATION
  Report Type: Spontaneous
  Country: US (occurrence: None)
  Receive Date: 20121220
  Receipt Date: 20121220
  Transmission Date: 20130627
  Serious: Yes (Death, Hospitalization)
  Sender: FDA-Public Use
  Company Number: None

PATIENT
  Age: 74 Year
  Sex: Female
  Weight: 88.1 kg

DRUGS (5)
  1. IPILIMUMAB [Suspect]
     Indication: METASTATIC MELANOMA
     Dosage: 3 MG/KG -264 MG- Q3 WKS IV ONCE
     Route: 042
     Dates: start: 20121213, end: 20121213
  2. IPILIMUMAB [Suspect]
  3. ZOFRAN [Concomitant]
  4. ACETAMINOPHEN [Concomitant]
  5. DILAUDID [Concomitant]

REACTIONS (3)
  - Tumour lysis syndrome [None]
  - Acute hepatic failure [None]
  - Shock [None]
